FAERS Safety Report 12388415 (Version 1)
Quarter: 2016Q2

REPORT INFORMATION
  Report Type: Spontaneous
  Country: US (occurrence: None)
  Receive Date: 20160519
  Receipt Date: 20160519
  Transmission Date: 20160815
  Serious: No
  Sender: FDA-Public Use
  Company Number: None

PATIENT
  Age: 53 Year
  Sex: Female
  Weight: 63.5 kg

DRUGS (2)
  1. ARMOUR THYROID [Concomitant]
     Active Substance: THYROID, PORCINE
  2. CYMBALTA [Suspect]
     Active Substance: DULOXETINE HYDROCHLORIDE
     Indication: DEPRESSION
     Route: 048
     Dates: start: 20070501, end: 20160518

REACTIONS (7)
  - Drug withdrawal syndrome [None]
  - Malaise [None]
  - Dizziness [None]
  - Hyperhidrosis [None]
  - Mental impairment [None]
  - Paraesthesia [None]
  - Nausea [None]

NARRATIVE: CASE EVENT DATE: 20160501
